FAERS Safety Report 24802014 (Version 1)
Quarter: 2025Q1

REPORT INFORMATION
  Report Type: Spontaneous
  Country: NO (occurrence: NO)
  Receive Date: 20250102
  Receipt Date: 20250102
  Transmission Date: 20250409
  Serious: No
  Sender: ALKEM
  Company Number: NO-ALKEM LABORATORIES LIMITED-NO-ALKEM-2024-24123

PATIENT
  Age: 2 Month

DRUGS (1)
  1. TOPIRAMATE [Suspect]
     Active Substance: TOPIRAMATE
     Indication: Product used for unknown indication
     Route: 063

REACTIONS (2)
  - Diarrhoea [Recovering/Resolving]
  - Exposure via breast milk [Unknown]
